FAERS Safety Report 10247797 (Version 1)
Quarter: 2014Q2

REPORT INFORMATION
  Report Type: Spontaneous
  Country: DE (occurrence: DE)
  Receive Date: 20140619
  Receipt Date: 20140619
  Transmission Date: 20141212
  Serious: Yes (Life-Threatening, Hospitalization)
  Sender: FDA-Public Use
  Company Number: DE-EISAI INC-E2090-03348-SPO-DE

PATIENT
  Age: 21 Year
  Sex: Male
  Weight: 51 kg

DRUGS (8)
  1. ZONISAMIDE [Suspect]
     Indication: EPILEPSY
     Route: 048
     Dates: end: 20130807
  2. MOVICOL [Concomitant]
     Indication: CONSTIPATION
     Dosage: 1X1 BTL.
     Route: 048
  3. CEFUROXIM [Concomitant]
     Indication: BRONCHOPNEUMONIA
     Route: 042
     Dates: start: 20130803, end: 20130827
  4. LAMOTRIGIN [Concomitant]
     Indication: EPILEPSY
     Route: 048
  5. LACOSAMID [Concomitant]
     Indication: EPILEPSY
     Route: 048
  6. CLOBAZAM [Concomitant]
     Indication: EPILEPSY
     Route: 048
  7. MELATONIN [Concomitant]
     Indication: INSOMNIA
     Route: 048
  8. OMEPRAZOL [Concomitant]
     Indication: GASTROOESOPHAGEAL REFLUX PROPHYLAXIS
     Route: 048

REACTIONS (1)
  - Agranulocytosis [Recovered/Resolved]
